FAERS Safety Report 10216349 (Version 3)
Quarter: 2014Q2

REPORT INFORMATION
  Report Type: Spontaneous
  Country: JP (occurrence: JP)
  Receive Date: 20140604
  Receipt Date: 20140619
  Transmission Date: 20141212
  Serious: Yes (Other)
  Sender: FDA-Public Use
  Company Number: JP-TEVA-484057ISR

PATIENT
  Age: 2 Year
  Sex: Male
  Weight: 13 kg

DRUGS (4)
  1. (TS)CYPROHEPTADINE HYDROCHLORIDE SYRUP 0.04% ^TAIYO^,SYR,10ML [Suspect]
     Dosage: 6 ML DAILY;
     Route: 048
     Dates: start: 20140424, end: 20140430
  2. (TS)CYPROHEPTADINE HYDROCHLORIDE SYRUP 0.04% ^TAIYO^,SYR,10ML [Suspect]
     Route: 048
     Dates: start: 20140214
  3. MUCODYNE SYRUP [Concomitant]
     Route: 048
     Dates: start: 20140424, end: 20140430
  4. MEDICON [Concomitant]
     Route: 048
     Dates: start: 20140424, end: 20140430

REACTIONS (4)
  - Febrile convulsion [Recovered/Resolved]
  - Loss of consciousness [Recovered/Resolved]
  - Pyrexia [Recovered/Resolved]
  - Pharyngeal erythema [Unknown]
